FAERS Safety Report 4523259-9 (Version None)
Quarter: 2004Q4

REPORT INFORMATION
  Report Type: 
  Country: None (occurrence: None)
  Receive Date: 20041130
  Receipt Date: 20041115
  Transmission Date: 20050328
  Serious: Yes (Other)
  Sender: FDA-Public Use
  Company Number: 601349

PATIENT
  Age: 18 Month
  Sex: Male
  Weight: 12.8 kg

DRUGS (5)
  1. ADVATE [Suspect]
     Indication: FACTOR VIII DEFICIENCY
     Dosage: 2 BOT; PRN; INTRAVENOUS
     Route: 042
     Dates: start: 20040107, end: 20040623
  2. ADVATE [Suspect]
  3. RECOMBINATE [Suspect]
     Indication: FACTOR VIII DEFICIENCY
     Dosage: 1 BOT; PRN; INTRAVENOUS
     Route: 042
     Dates: start: 20030301, end: 20040310
  4. RECOMBINATE [Suspect]
  5. RECOMBINATE [Suspect]

REACTIONS (3)
  - FACTOR VIII INHIBITION [None]
  - HAEMORRHAGE [None]
  - HAEMORRHAGE INTRACRANIAL [None]
